FAERS Safety Report 24607973 (Version 1)
Quarter: 2024Q4

REPORT INFORMATION
  Report Type: Spontaneous
  Country: FR (occurrence: FR)
  Receive Date: 20241112
  Receipt Date: 20241112
  Transmission Date: 20250115
  Serious: Yes (Life-Threatening)
  Sender: CELLTRION
  Company Number: FR-CELLTRION INC.-2024FR027894

PATIENT

DRUGS (1)
  1. INFLIXIMAB [Suspect]
     Active Substance: INFLIXIMAB
     Indication: Product used for unknown indication
     Dosage: 1000 MG, EVERY 4 WEEKS (10 VIALS OF REMSIMA, INCLUDING 1 VIAL FROM THE INCRIMINATED BATCH)
     Route: 042
     Dates: start: 20241028

REACTIONS (2)
  - Ill-defined disorder [Unknown]
  - Product quality issue [Unknown]

NARRATIVE: CASE EVENT DATE: 20241028
